FAERS Safety Report 9005499 (Version 1)
Quarter: 2013Q1

REPORT INFORMATION
  Report Type: Report from Study
  Country: JP (occurrence: JP)
  Receive Date: 20130109
  Receipt Date: 20130109
  Transmission Date: 20140127
  Serious: Yes (Death, Hospitalization, Other)
  Sender: FDA-Public Use
  Company Number: JP-009507513-2009SP021572

PATIENT
  Age: 51 Year
  Sex: Male
  Weight: 52 kg

DRUGS (13)
  1. TEMOZOLOMIDE [Suspect]
     Indication: ANAPLASTIC ASTROCYTOMA
     Dosage: 75 MG/M2, UNK
     Route: 048
     Dates: start: 20080115, end: 20080225
  2. TEMOZOLOMIDE [Suspect]
     Dosage: 150 MG/M2, UNK
     Route: 048
     Dates: start: 20080327, end: 20080331
  3. TEMOZOLOMIDE [Suspect]
     Dosage: 150 MG/M2, UNK
     Route: 048
     Dates: start: 20080428, end: 20080502
  4. TEMOZOLOMIDE [Suspect]
     Dosage: 150 MG/M2, UNK
     Route: 048
     Dates: start: 20080526, end: 20080530
  5. TEMOZOLOMIDE [Suspect]
     Dosage: 150 MG/M2, UNK
     Route: 048
     Dates: start: 20080623, end: 20080627
  6. TEMOZOLOMIDE [Suspect]
     Dosage: 150 MG/M2, UNK
     Route: 048
     Dates: start: 20080721, end: 20080725
  7. TEMOZOLOMIDE [Suspect]
     Dosage: 150 MG/M2, UNK
     Route: 048
     Dates: start: 20080818, end: 20080822
  8. AMOBAN [Concomitant]
     Dosage: 7.5 MG, UNK
     Route: 048
  9. MAGNESIUM OXIDE [Concomitant]
  10. DEPAKENE [Concomitant]
     Route: 048
     Dates: start: 20071213
  11. GABAPEN [Concomitant]
     Route: 048
     Dates: start: 20080925
  12. LOXONIN [Concomitant]
  13. ALEVIATIN [Concomitant]
     Route: 048
     Dates: start: 20080721

REACTIONS (3)
  - Epilepsy [Recovered/Resolved]
  - Disease progression [Fatal]
  - Lymphopenia [Unknown]
